FAERS Safety Report 4913108-9 (Version None)
Quarter: 2006Q1

REPORT INFORMATION
  Report Type: 
  Country: None (occurrence: None)
  Receive Date: 20060210
  Receipt Date: 20060127
  Transmission Date: 20060701
  Serious: Yes (Death)
  Sender: FDA-Public Use
  Company Number: L05-USA-03935-48

PATIENT
  Age: 50 Year
  Sex: 0

DRUGS (5)
  1. LEXAPRO [Suspect]
  2. DOXEPIN [Suspect]
  3. LOPRESSOR [Suspect]
  4. PLAVIX [Suspect]
  5. TEMAZEPAM [Suspect]

REACTIONS (8)
  - AORTIC ARTERIOSCLEROSIS [None]
  - ARTERIOSCLEROSIS CORONARY ARTERY [None]
  - BLOOD PRESSURE DECREASED [None]
  - CARDIOMEGALY [None]
  - COMPLETED SUICIDE [None]
  - HEART RATE DECREASED [None]
  - LOSS OF CONSCIOUSNESS [None]
  - TOXICOLOGIC TEST ABNORMAL [None]
